FAERS Safety Report 12253077 (Version 3)
Quarter: 2016Q4

REPORT INFORMATION
  Report Type: Report from Study
  Country: JP (occurrence: JP)
  Receive Date: 20160411
  Receipt Date: 20161227
  Transmission Date: 20170207
  Serious: Yes (Death, Other)
  Sender: FDA-Public Use
  Company Number: JP-BRISTOL-MYERS SQUIBB COMPANY-BMS-2016-027174

PATIENT
  Age: 65 Year
  Sex: Male

DRUGS (1)
  1. NIVOLUMAB [Suspect]
     Active Substance: NIVOLUMAB
     Indication: NON-SMALL CELL LUNG CANCER RECURRENT
     Dosage: 3 MG/KG, Q2WK
     Route: 041
     Dates: start: 20160315, end: 20160315

REACTIONS (5)
  - Malignant neoplasm progression [Fatal]
  - Chest X-ray abnormal [Unknown]
  - Liver disorder [Not Recovered/Not Resolved]
  - Pyrexia [Recovering/Resolving]
  - Cell marker [Unknown]

NARRATIVE: CASE EVENT DATE: 201603
